FAERS Safety Report 18245590 (Version 2)
Quarter: 2020Q3

REPORT INFORMATION
  Report Type: Spontaneous
  Country: US (occurrence: US)
  Receive Date: 20200909
  Receipt Date: 20200915
  Transmission Date: 20201103
  Serious: Yes (Hospitalization, Other)
  Sender: FDA-Public Use
  Company Number: US-GLAXOSMITHKLINE-US2020AMR176685

PATIENT
  Sex: Female

DRUGS (1)
  1. ZEJULA [Suspect]
     Active Substance: NIRAPARIB
     Indication: OVARIAN CANCER
     Dosage: 200 MG, QD, QPM WITHOUT FOOD
     Route: 065
     Dates: start: 20200818

REACTIONS (5)
  - Carbohydrate antigen 125 increased [Unknown]
  - Insomnia [Recovered/Resolved]
  - Thrombocytopenia [Unknown]
  - Blood pressure increased [Unknown]
  - Nausea [Recovered/Resolved]
